FAERS Safety Report 25925302 (Version 1)
Quarter: 2025Q4

REPORT INFORMATION
  Report Type: Spontaneous
  Country: US (occurrence: US)
  Receive Date: 20251015
  Receipt Date: 20251015
  Transmission Date: 20260118
  Serious: No
  Sender: SHIELD THERAPEUTICS
  Company Number: SHLD2500076

PATIENT
  Age: 35 Year
  Sex: Female

DRUGS (1)
  1. ACCRUFER [Suspect]
     Active Substance: FERRIC MALTOL
     Indication: Blood iron decreased
     Dosage: 2 CAPSULES DAILY
     Route: 048
     Dates: start: 202502

REACTIONS (2)
  - Maternal exposure during pregnancy [Unknown]
  - Product dose omission issue [Unknown]
